FAERS Safety Report 18410276 (Version 4)
Quarter: 2020Q4

REPORT INFORMATION
  Report Type: Spontaneous
  Country: US (occurrence: US)
  Receive Date: 20201021
  Receipt Date: 20201207
  Transmission Date: 20210114
  Serious: Yes (Other)
  Sender: FDA-Public Use
  Company Number: US-PFIZER INC-2020405406

PATIENT
  Age: 73 Year
  Sex: Male

DRUGS (1)
  1. RUXIENCE [Suspect]
     Active Substance: RITUXIMAB-PVVR
     Dosage: 880 MG, UNK

REACTIONS (2)
  - Recurrent cancer [Unknown]
  - Non-Hodgkin^s lymphoma [Unknown]
